FAERS Safety Report 6854315-8 (Version None)
Quarter: 2010Q3

REPORT INFORMATION
  Report Type: 
  Country: None (occurrence: None)
  Receive Date: 20100717
  Receipt Date: 20080102
  Transmission Date: 20110219
  Serious: Yes (Hospitalization, Other)
  Sender: FDA-Public Use
  Company Number: US-PFIZER INC-2008001374

PATIENT
  Sex: Male
  Weight: 72.727 kg

DRUGS (1)
  1. CHANTIX [Suspect]

REACTIONS (2)
  - FEELING ABNORMAL [None]
  - SUICIDE ATTEMPT [None]
